FAERS Safety Report 6871985-9 (Version None)
Quarter: 2010Q3

REPORT INFORMATION
  Report Type: 
  Country: None (occurrence: None)
  Receive Date: 20100723
  Receipt Date: 20100713
  Transmission Date: 20110219
  Serious: Yes (Other)
  Sender: FDA-Public Use
  Company Number: US-PFIZER INC-2010087948

PATIENT
  Sex: Female

DRUGS (1)
  1. CHANTIX [Suspect]
     Dosage: UNK

REACTIONS (4)
  - DEPRESSED MOOD [None]
  - DIABETES MELLITUS [None]
  - MEMORY IMPAIRMENT [None]
  - SLEEP APNOEA SYNDROME [None]
